FAERS Safety Report 5659742-2 (Version None)
Quarter: 2008Q1

REPORT INFORMATION
  Report Type: 
  Country: None (occurrence: None)
  Receive Date: 20080311
  Receipt Date: 20070709
  Transmission Date: 20080703
  Serious: No
  Sender: FDA-Public Use
  Company Number: US-BAYER-200712170BCC

PATIENT
  Sex: Female

DRUGS (5)
  1. ALEVE [Suspect]
     Indication: HEADACHE
     Dosage: UNIT DOSE: 220 MG
     Route: 048
     Dates: start: 20070709
  2. SYNTHROID [Concomitant]
  3. PROZAC [Concomitant]
  4. ASPIRIN [Concomitant]
  5. OSCAL [Concomitant]

REACTIONS (1)
  - PRURITUS [None]
